FAERS Safety Report 5598296-6 (Version None)
Quarter: 2008Q1

REPORT INFORMATION
  Report Type: 
  Country: None (occurrence: None)
  Receive Date: 20080122
  Receipt Date: 20080117
  Transmission Date: 20080703
  Serious: Yes (Other)
  Sender: FDA-Public Use
  Company Number: BE-AVENTIS-200715976EU

PATIENT
  Age: 83 Year
  Sex: Female
  Weight: 65 kg

DRUGS (8)
  1. CLEXANE [Suspect]
     Route: 058
     Dates: start: 20071113, end: 20071122
  2. REMERGON [Suspect]
     Indication: INSOMNIA
     Route: 048
     Dates: start: 20071001, end: 20071130
  3. COVERSYL                           /00790701/ [Concomitant]
  4. LEXOTAN [Concomitant]
  5. LENDORMIN [Concomitant]
  6. BURINEX [Concomitant]
  7. MIXTARD HUMAN 70/30 [Concomitant]
  8. CARDIOASPIRINE [Concomitant]

REACTIONS (4)
  - MOUTH ULCERATION [None]
  - PRURITUS [None]
  - RASH [None]
  - TOXIC EPIDERMAL NECROLYSIS [None]
